FAERS Safety Report 4966924-1 (Version None)
Quarter: 2006Q2

REPORT INFORMATION
  Report Type: 
  Country: None (occurrence: None)
  Receive Date: 20060407
  Receipt Date: 20051221
  Transmission Date: 20061013
  Serious: Yes (Hospitalization)
  Sender: FDA-Public Use
  Company Number: US-MERCK-0512USA03434

PATIENT
  Age: 50 Year
  Sex: Female
  Weight: 145 kg

DRUGS (44)
  1. METOPROLOL SUCCINATE [Concomitant]
     Route: 065
  2. LEVAQUIN [Concomitant]
     Route: 065
  3. FAMOTIDINE [Concomitant]
     Route: 065
  4. BENZONATATE [Concomitant]
     Route: 065
  5. SEREVENT [Concomitant]
     Route: 065
  6. TEQUIN [Concomitant]
     Route: 065
  7. LISINOPRIL [Concomitant]
     Route: 065
  8. NOVOLIN [Concomitant]
     Route: 065
  9. HUMULIN [Concomitant]
     Route: 065
  10. DOXEPIN HYDROCHLORIDE [Concomitant]
     Route: 065
  11. HYDROXYZINE HYDROCHLORIDE [Concomitant]
     Route: 065
  12. DIPHENHYDRAMINE HYDROCHLORIDE [Concomitant]
     Route: 065
  13. PEPCID [Concomitant]
     Indication: GASTRIC DISORDER
     Route: 065
  14. PHENERGAN (PROMETHAZINE HYDROCHLORIDE) [Concomitant]
     Indication: NAUSEA
     Route: 065
  15. ZYRTEC [Concomitant]
     Indication: HYPERSENSITIVITY
     Route: 065
  16. TERAZOSIN HYDROCHLORIDE [Concomitant]
     Route: 065
  17. ESTRADERM [Concomitant]
     Route: 065
  18. VIOXX [Suspect]
     Indication: OSTEOARTHRITIS
     Route: 048
     Dates: start: 19990623, end: 20040601
  19. VIOXX [Suspect]
     Indication: ARTHRITIS
     Route: 048
     Dates: start: 19990623, end: 20040601
  20. ZESTRIL [Concomitant]
     Indication: HYPERTENSION
     Route: 065
     Dates: start: 19990501
  21. HYTRIN [Concomitant]
     Indication: HYPERTENSION
     Route: 065
     Dates: start: 19990701, end: 19990801
  22. BUMETANIDE [Concomitant]
     Indication: POLYURIA
     Route: 065
     Dates: start: 20000512
  23. ZOCOR [Concomitant]
     Indication: BLOOD CHOLESTEROL INCREASED
     Route: 065
     Dates: start: 19990701, end: 20020419
  24. LORCET-HD [Concomitant]
     Indication: PAIN
     Route: 065
     Dates: start: 19990501
  25. METHOCARBAMOL [Concomitant]
     Indication: PAIN
     Route: 065
     Dates: start: 19990501
  26. OXYCONTIN [Concomitant]
     Indication: PAIN
     Route: 065
     Dates: start: 20000608
  27. MEPERIDINE HYDROCHLORIDE TABLETS USP [Concomitant]
     Indication: PAIN
     Route: 065
     Dates: start: 20000630
  28. HYDROCODONE BITARTRATE [Concomitant]
     Indication: PAIN
     Route: 065
     Dates: start: 20020102
  29. PREMPRO [Concomitant]
     Indication: HORMONE REPLACEMENT THERAPY
     Route: 065
     Dates: start: 20000401, end: 20020901
  30. INSULIN [Concomitant]
     Indication: DIABETES MELLITUS
     Route: 065
  31. GLUCOPHAGE [Concomitant]
     Indication: DIABETES MELLITUS
     Route: 065
  32. ACTOS [Concomitant]
     Indication: DIABETES MELLITUS
     Route: 065
  33. SYNTHROID [Concomitant]
     Indication: THYROID DISORDER
     Route: 065
  34. ACETAMINOPHEN AND PROPOXYPHENE NAPSYLATE [Concomitant]
     Route: 065
     Dates: start: 19990501, end: 20020201
  35. MECLIZINE [Concomitant]
     Route: 065
  36. PROMETHAZINE [Concomitant]
     Indication: HYPERSENSITIVITY
     Route: 065
  37. CEPHALEXIN [Concomitant]
     Route: 065
  38. RANITIDINE [Concomitant]
     Indication: IRRITABLE BOWEL SYNDROME
     Route: 065
  39. LOTRONEX [Concomitant]
     Route: 065
  40. DIFLUCAN [Concomitant]
     Route: 065
  41. METOCLOPRAMIDE [Concomitant]
     Route: 065
  42. KLOR-CON [Concomitant]
     Route: 065
  43. LORAZEPAM [Concomitant]
     Route: 065
  44. ALPRAZOLAM [Concomitant]
     Route: 065

REACTIONS (18)
  - ADRENAL INSUFFICIENCY [None]
  - ASTHENIA [None]
  - CEREBRAL INFARCTION [None]
  - CEREBROVASCULAR ACCIDENT [None]
  - COUGH [None]
  - DEPRESSION [None]
  - DIABETES MELLITUS [None]
  - DRUG ABUSER [None]
  - DYSPNOEA [None]
  - GASTROINTESTINAL DISORDER [None]
  - GLYCOSYLATED HAEMOGLOBIN INCREASED [None]
  - HYPERTENSION [None]
  - NEPHROLITHIASIS [None]
  - NEUROPATHY PERIPHERAL [None]
  - OEDEMA PERIPHERAL [None]
  - PERIPHERAL VASCULAR DISORDER [None]
  - SINUSITIS [None]
  - VIRAL PHARYNGITIS [None]
